FAERS Safety Report 15900715 (Version 3)
Quarter: 2019Q1

REPORT INFORMATION
  Report Type: Report from Study
  Country: SE (occurrence: SE)
  Receive Date: 20190201
  Receipt Date: 20190301
  Transmission Date: 20190417
  Serious: Yes (Other)
  Sender: FDA-Public Use
  Company Number: SE-REGENERON PHARMACEUTICALS, INC.-2019-13575

PATIENT

DRUGS (1)
  1. EYLEA [Suspect]
     Active Substance: AFLIBERCEPT
     Indication: PRODUCT USED FOR UNKNOWN INDICATION
     Dosage: TOTAL DOSES AND LAST DOSE PRIOR THE EVENT WERE NOT PROVIDED

REACTIONS (3)
  - Diabetes mellitus inadequate control [Unknown]
  - Headache [Unknown]
  - Deep vein thrombosis [Unknown]
